FAERS Safety Report 8426737-5 (Version None)
Quarter: 2012Q2

REPORT INFORMATION
  Report Type: 
  Country: None (occurrence: None)
  Receive Date: 20120611
  Receipt Date: 20120528
  Transmission Date: 20120825
  Serious: Yes (Other)
  Sender: FDA-Public Use
  Company Number: PHHY2012IE011836

PATIENT
  Sex: Female
  Weight: 23.8 kg

DRUGS (4)
  1. TOBI [Suspect]
     Dates: start: 20120104, end: 20120131
  2. TOBI [Suspect]
     Dates: start: 20111109, end: 20111206
  3. ZITHROMAX [Concomitant]
     Dosage: 200 MG, UNK
     Route: 048
     Dates: start: 20090101
  4. NASONEX [Concomitant]
     Dates: start: 20090101

REACTIONS (3)
  - DYSPHONIA [None]
  - APHONIA [None]
  - PRIMARY CILIARY DYSKINESIA [None]
